FAERS Safety Report 4628137-2 (Version None)
Quarter: 2005Q2

REPORT INFORMATION
  Report Type: 
  Country: None (occurrence: None)
  Receive Date: 20050404
  Receipt Date: 20050324
  Transmission Date: 20051028
  Serious: Yes (Other)
  Sender: FDA-Public Use
  Company Number: GXKR2005AU00835

PATIENT
  Age: 82 Year
  Sex: Male

DRUGS (3)
  1. SPIRONOLACTONE [Suspect]
  2. COVERSYL (PERINDOPRIL) [Suspect]
  3. CELECOXIB (CELECOXIB) [Suspect]

REACTIONS (2)
  - CARDIAC FAILURE [None]
  - CREPITATIONS [None]
